FAERS Safety Report 12605573 (Version 2)
Quarter: 2016Q3

REPORT INFORMATION
  Report Type: Report from Study
  Country: IT (occurrence: IT)
  Receive Date: 20160729
  Receipt Date: 20160811
  Transmission Date: 20161109
  Serious: Yes (Other)
  Sender: FDA-Public Use
  Company Number: IT-BRISTOL-MYERS SQUIBB COMPANY-BMS-2016-059806

PATIENT
  Age: 72 Year
  Sex: Male

DRUGS (1)
  1. NIVOLUMAB [Suspect]
     Active Substance: NIVOLUMAB
     Indication: NON-SMALL CELL LUNG CANCER
     Dosage: 3 MG/KG, Q2WK
     Route: 042

REACTIONS (6)
  - General physical condition abnormal [Unknown]
  - Musculoskeletal disorder [Unknown]
  - Malignant neoplasm progression [Unknown]
  - Musculoskeletal pain [Unknown]
  - Laboratory test abnormal [Unknown]
  - Neurological examination abnormal [Unknown]

NARRATIVE: CASE EVENT DATE: 20151221
